FAERS Safety Report 7308726-7 (Version None)
Quarter: 2011Q1

REPORT INFORMATION
  Report Type: 
  Country: None (occurrence: None)
  Receive Date: 20110223
  Receipt Date: 20110211
  Transmission Date: 20110831
  Serious: Yes (Other)
  Sender: FDA-Public Use
  Company Number: PHHY2011BR12022

PATIENT
  Sex: Male
  Weight: 107 kg

DRUGS (2)
  1. DIOVAN [Suspect]
     Indication: HYPERTENSION
     Dosage: 80 MG, 1 TABLET A DAY
     Route: 048
     Dates: start: 20080101
  2. DIOVAN [Suspect]
     Dosage: 160 MG

REACTIONS (2)
  - BLOOD PRESSURE FLUCTUATION [None]
  - DIABETES MELLITUS [None]
